FAERS Safety Report 21942271 (Version 1)
Quarter: 2023Q1

REPORT INFORMATION
  Report Type: Report from Study
  Country: US (occurrence: US)
  Receive Date: 20230202
  Receipt Date: 20230202
  Transmission Date: 20230418
  Serious: No
  Sender: FDA-Public Use
  Company Number: US-EXELIXIS-CABO-22057121

PATIENT
  Age: 56 Year
  Sex: Male
  Weight: 72.562 kg

DRUGS (12)
  1. CABOMETYX [Suspect]
     Active Substance: CABOZANTINIB S-MALATE
     Indication: Renal cell carcinoma
     Dosage: 40 MG, QD
     Dates: start: 20220929
  2. CABOMETYX [Suspect]
     Active Substance: CABOZANTINIB S-MALATE
     Dosage: 40 MG, QD
  3. XGEVA [Suspect]
     Active Substance: DENOSUMAB
     Indication: Renal cell carcinoma
     Dosage: 120 MG, EVERY MONTH
     Route: 058
  4. METFORMIN HYDROCHLORIDE [Concomitant]
     Active Substance: METFORMIN HYDROCHLORIDE
     Dosage: UNK
  5. LANTUS [Concomitant]
     Active Substance: INSULIN GLARGINE
     Dosage: UNK
  6. HUMALOG [Concomitant]
     Active Substance: INSULIN LISPRO
     Dosage: UNK
  7. VITAMIN D [Concomitant]
     Active Substance: VITAMIN D NOS
     Dosage: UNK
  8. FARXIGA [Concomitant]
     Active Substance: DAPAGLIFLOZIN PROPANEDIOL
     Dosage: UNK
  9. VITAMINS [Concomitant]
     Active Substance: VITAMINS
     Dosage: UNK
  10. STOOL SOFTENER PLUS LAXATIVE [Concomitant]
     Active Substance: DOCUSATE SODIUM\SENNOSIDES
     Dosage: UNK
  11. ZINC [Concomitant]
     Active Substance: ZINC
     Dosage: UNK
  12. METAMUCIL [Concomitant]
     Active Substance: PLANTAGO SEED

REACTIONS (14)
  - Skin swelling [Recovered/Resolved]
  - Blood magnesium increased [Not Recovered/Not Resolved]
  - Skin exfoliation [Unknown]
  - Blood cholesterol increased [Not Recovered/Not Resolved]
  - Increased appetite [Unknown]
  - Dry skin [Unknown]
  - Dysgeusia [Recovered/Resolved]
  - Stomatitis [Recovered/Resolved]
  - Blood pressure increased [Recovering/Resolving]
  - Anaemia [Not Recovered/Not Resolved]
  - Lymphadenopathy [Unknown]
  - Flatulence [Recovering/Resolving]
  - Diarrhoea [Unknown]
  - Product dose omission issue [Unknown]

NARRATIVE: CASE EVENT DATE: 20221101
